FAERS Safety Report 5357257-2 (Version None)
Quarter: 2007Q2

REPORT INFORMATION
  Report Type: 
  Country: None (occurrence: None)
  Receive Date: 20070612
  Receipt Date: 20070612
  Transmission Date: 20071010
  Serious: Yes (Other)
  Sender: FDA-Public Use
  Company Number: None

PATIENT
  Age: 27 Year
  Sex: Female
  Weight: 52.1637 kg

DRUGS (1)
  1. STRATTERA [Suspect]
     Dosage: 10MG ONCE A DAY PO
     Route: 048
     Dates: start: 20050410, end: 20050414

REACTIONS (11)
  - CONFUSIONAL STATE [None]
  - DEPRESSED MOOD [None]
  - DIZZINESS [None]
  - FEELING ABNORMAL [None]
  - FEELING OF DESPAIR [None]
  - FEELINGS OF WORTHLESSNESS [None]
  - MENTAL DISORDER [None]
  - ORAL INTAKE REDUCED [None]
  - SELF-MEDICATION [None]
  - SUICIDAL IDEATION [None]
  - TREMOR [None]
